FAERS Safety Report 7705331-5 (Version None)
Quarter: 2011Q3

REPORT INFORMATION
  Report Type: 
  Country: None (occurrence: None)
  Receive Date: 20110824
  Receipt Date: 20110809
  Transmission Date: 20111222
  Serious: Yes (Hospitalization)
  Sender: FDA-Public Use
  Company Number: ES-UCBSA-038799

PATIENT
  Age: 86 Year
  Sex: Female

DRUGS (1)
  1. KEPPRA [Suspect]
     Dosage: STRENGHT:100 MG/ML
     Route: 042
     Dates: start: 20101108, end: 20101120

REACTIONS (1)
  - PEMPHIGOID [None]
